FAERS Safety Report 4680760-5 (Version None)
Quarter: 2005Q2

REPORT INFORMATION
  Report Type: 
  Country: None (occurrence: None)
  Receive Date: 20050603
  Receipt Date: 20050524
  Transmission Date: 20051028
  Serious: Yes (Other)
  Sender: FDA-Public Use
  Company Number: NSADSS2002008143

PATIENT
  Age: 19 Year
  Sex: Male

DRUGS (2)
  1. REMICADE [Suspect]
     Route: 041
     Dates: start: 20011217
  2. REMICADE [Suspect]
     Indication: SPONDYLOARTHROPATHY
     Route: 041
     Dates: start: 20011217

REACTIONS (4)
  - ABDOMINAL PAIN [None]
  - AUTOANTIBODY POSITIVE [None]
  - LYMPHOCYTOSIS [None]
  - NEUTROPHIL COUNT DECREASED [None]
